FAERS Safety Report 5053737-8 (Version None)
Quarter: 2006Q3

REPORT INFORMATION
  Report Type: 
  Country: None (occurrence: None)
  Receive Date: 20060718
  Receipt Date: 20060405
  Transmission Date: 20061208
  Serious: Yes (Hospitalization)
  Sender: FDA-Public Use
  Company Number: US-AMGEN-US175756

PATIENT
  Sex: Female
  Weight: 52.2 kg

DRUGS (8)
  1. PROCRIT [Suspect]
     Indication: RENAL FAILURE CHRONIC
     Dates: start: 20040309
  2. LASIX [Concomitant]
  3. DIOVAN [Concomitant]
  4. THYROID TAB [Concomitant]
  5. HALDOL [Concomitant]
  6. ACTONEL [Concomitant]
  7. DARVOCET [Concomitant]
  8. ALLOPURINOL [Concomitant]

REACTIONS (2)
  - MYELODYSPLASTIC SYNDROME [None]
  - THERAPEUTIC RESPONSE DECREASED [None]
